FAERS Safety Report 18225775 (Version 3)
Quarter: 2020Q4

REPORT INFORMATION
  Report Type: Spontaneous
  Country: US (occurrence: US)
  Receive Date: 20200903
  Receipt Date: 20201127
  Transmission Date: 20210113
  Serious: Yes (Hospitalization, Other)
  Sender: FDA-Public Use
  Company Number: US-UCBSA-2020033748

PATIENT
  Sex: Male
  Weight: 58.96 kg

DRUGS (1)
  1. BRIVIACT [Suspect]
     Active Substance: BRIVARACETAM
     Indication: HYDROCEPHALUS
     Dosage: .75MG

REACTIONS (11)
  - Myoclonic epilepsy [Unknown]
  - Exercise tolerance decreased [Unknown]
  - Underdose [Unknown]
  - Product use in unapproved indication [Unknown]
  - Off label use [Unknown]
  - Pharyngitis [Unknown]
  - Infective glossitis [Unknown]
  - Dyskinesia [Unknown]
  - Respiratory arrest [Recovered/Resolved]
  - Anaphylactic shock [Unknown]
  - Pneumonia [Unknown]

NARRATIVE: CASE EVENT DATE: 201912
